FAERS Safety Report 15548060 (Version 2)
Quarter: 2018Q4

REPORT INFORMATION
  Report Type: Spontaneous
  Country: FR (occurrence: FR)
  Receive Date: 20181024
  Receipt Date: 20181105
  Transmission Date: 20190205
  Serious: Yes (Hospitalization, Other)
  Sender: FDA-Public Use
  Company Number: FR-INDIVIOR LIMITED-INDV-115182-2018

PATIENT
  Age: 41 Year
  Sex: Male

DRUGS (6)
  1. SERESTA [Suspect]
     Active Substance: OXAZEPAM
     Indication: PRODUCT USED FOR UNKNOWN INDICATION
     Dosage: 150 MG ONCE DAILY
     Route: 065
     Dates: start: 1993, end: 2016
  2. BUPRENORPHINE. [Suspect]
     Active Substance: BUPRENORPHINE
     Indication: PRODUCT USED FOR UNKNOWN INDICATION
     Dosage: UNK
     Route: 045
     Dates: start: 2007
  3. KETAMINE [Suspect]
     Active Substance: KETAMINE
     Indication: PRODUCT USED FOR UNKNOWN INDICATION
     Dosage: 3 EXPERIMENTATIONS
     Route: 065
  4. SKENAN [Suspect]
     Active Substance: MORPHINE SULFATE
     Indication: PRODUCT USED FOR UNKNOWN INDICATION
     Dosage: UNK
     Route: 042
     Dates: start: 2013, end: 2013
  5. NICOTINE. [Suspect]
     Active Substance: NICOTINE
     Indication: TOBACCO USER
     Dosage: 30 CIG/DAY
     Route: 055
     Dates: start: 1991
  6. ALCOHOL. [Suspect]
     Active Substance: ALCOHOL
     Indication: ALCOHOL USE
     Dosage: 10 U/DAY AND 35 U/DAY WE
     Route: 048
     Dates: start: 1985

REACTIONS (7)
  - Tibia fracture [Unknown]
  - Drug abuse [Recovering/Resolving]
  - Alcohol abuse [Recovering/Resolving]
  - Intentional product use issue [Unknown]
  - Substance abuse [Recovering/Resolving]
  - Intentional product misuse [Recovered/Resolved]
  - Drug dependence [Recovering/Resolving]

NARRATIVE: CASE EVENT DATE: 1985
